FAERS Safety Report 8153212-8 (Version None)
Quarter: 2012Q1

REPORT INFORMATION
  Report Type: 
  Country: None (occurrence: None)
  Receive Date: 20120221
  Receipt Date: 20120213
  Transmission Date: 20120608
  Serious: Yes (Other)
  Sender: FDA-Public Use
  Company Number: TW-JNJFOC-20120103461

PATIENT
  Sex: Male

DRUGS (10)
  1. CONCERTA [Suspect]
     Dosage: 108 MG
     Route: 048
     Dates: start: 20111201
  2. MULTIPLE VITAMINS [Concomitant]
     Route: 065
  3. LAMICTAL [Concomitant]
     Route: 065
  4. CONCERTA [Suspect]
     Indication: SOMNOLENCE
     Route: 048
  5. CONCERTA [Suspect]
     Indication: ATTENTION DEFICIT/HYPERACTIVITY DISORDER
     Dosage: DOSE PRESCIBED FOR ONE YEAR
     Route: 048
  6. CONCERTA [Suspect]
     Dosage: DOSE PRESCIBED FOR ONE YEAR
     Route: 048
  7. CONCERTA [Suspect]
     Dosage: 108 MG
     Route: 048
     Dates: start: 20111201
  8. CONCERTA [Suspect]
     Route: 048
  9. UNSPECIFIED ANTIDEPRESSANTS [Suspect]
     Indication: PRODUCT USED FOR UNKNOWN INDICATION
     Route: 065
  10. ZOLOFT [Concomitant]
     Route: 065

REACTIONS (11)
  - CONDITION AGGRAVATED [None]
  - TREMOR [None]
  - SOMNOLENCE [None]
  - WEIGHT DECREASED [None]
  - SUICIDAL IDEATION [None]
  - DECREASED APPETITE [None]
  - DRUG INEFFECTIVE [None]
  - PRODUCT SUBSTITUTION ISSUE [None]
  - TREATMENT NONCOMPLIANCE [None]
  - ATTENTION DEFICIT/HYPERACTIVITY DISORDER [None]
  - OVERDOSE [None]
